FAERS Safety Report 23509873 (Version 1)
Quarter: 2024Q1

REPORT INFORMATION
  Report Type: Spontaneous
  Country: FR (occurrence: FR)
  Receive Date: 20240211
  Receipt Date: 20240211
  Transmission Date: 20240410
  Serious: Yes (Other)
  Sender: FDA-Public Use
  Company Number: FR-AFSSAPS-RE2024000076

PATIENT
  Sex: Male

DRUGS (7)
  1. ASPIRIN [Suspect]
     Active Substance: ASPIRIN
     Indication: Atheroembolism
     Dosage: 100 MILLIGRAM
     Route: 048
     Dates: start: 20220428
  2. ATORVASTATIN [Suspect]
     Active Substance: ATORVASTATIN
     Indication: Atheroembolism
     Dosage: 80 MILLIGRAM
     Route: 048
     Dates: start: 202008, end: 20210406
  3. ATORVASTATIN [Suspect]
     Active Substance: ATORVASTATIN
     Dosage: 80 MILLIGRAM
     Route: 048
     Dates: start: 20210406, end: 20210428
  4. CLOPIDOGREL [Suspect]
     Active Substance: CLOPIDOGREL BISULFATE
     Indication: Atheroembolism
     Dosage: 75 MILLIGRAM
     Route: 048
     Dates: start: 202008, end: 20220428
  5. ATORVASTATIN\EZETIMIBE [Suspect]
     Active Substance: ATORVASTATIN\EZETIMIBE
     Indication: Atheroembolism
     Dosage: 1 DOSAGE FORM
     Route: 048
     Dates: start: 20210428
  6. COLCHICINE [Suspect]
     Active Substance: COLCHICINE
     Indication: Atheroembolism
     Dosage: 1 MILLIGRAM
     Route: 048
     Dates: start: 20210406, end: 20220428
  7. XARELTO [Suspect]
     Active Substance: RIVAROXABAN
     Indication: Atheroembolism
     Dosage: 20 MILLIGRAM
     Route: 048
     Dates: start: 202008, end: 20200925

REACTIONS (1)
  - Erectile dysfunction [Not Recovered/Not Resolved]

NARRATIVE: CASE EVENT DATE: 20201201
